FAERS Safety Report 7988851-8 (Version None)
Quarter: 2011Q4

REPORT INFORMATION
  Report Type: 
  Country: None (occurrence: None)
  Receive Date: 20111215
  Receipt Date: 20111215
  Transmission Date: 20120403
  Serious: Yes (Other)
  Sender: FDA-Public Use
  Company Number: None

PATIENT
  Sex: Male
  Weight: 50 kg

DRUGS (1)
  1. TRIPLE STRENGTH MELATONIN 3 MG NATURE'S BOUNTY, INC [Suspect]
     Indication: INSOMNIA
     Dosage: 3 MG ONCE DAILY 047
     Route: 048
     Dates: start: 20111123

REACTIONS (5)
  - RESTLESSNESS [None]
  - HALLUCINATION [None]
  - DIZZINESS [None]
  - INSOMNIA [None]
  - DYSPHORIA [None]
